FAERS Safety Report 8111113-5 (Version None)
Quarter: 2012Q1

REPORT INFORMATION
  Report Type: 
  Country: None (occurrence: None)
  Receive Date: 20120203
  Receipt Date: 20110502
  Transmission Date: 20120608
  Serious: No
  Sender: FDA-Public Use
  Company Number: US-GLAXOSMITHKLINE-A0925351A

PATIENT
  Age: 53 Year
  Sex: Female

DRUGS (4)
  1. ASPIRIN [Concomitant]
  2. FISH OIL [Concomitant]
  3. LAMICTAL [Suspect]
     Indication: ELECTROENCEPHALOGRAM ABNORMAL
     Dosage: 100MG TWICE PER DAY
     Route: 048
     Dates: start: 20090502
  4. VITAMIN TAB [Concomitant]

REACTIONS (2)
  - BLISTER [None]
  - RASH PRURITIC [None]
